FAERS Safety Report 17726409 (Version 2)
Quarter: 2020Q3

REPORT INFORMATION
  Report Type: Spontaneous
  Country: IT (occurrence: IT)
  Receive Date: 20200430
  Receipt Date: 20200923
  Transmission Date: 20201102
  Serious: Yes (Hospitalization)
  Sender: FDA-Public Use
  Company Number: IT-SUN PHARMACEUTICAL INDUSTRIES LTD-2019RR-245642

PATIENT
  Age: 57 Year
  Sex: Female
  Weight: 45 kg

DRUGS (6)
  1. OXALIPLATINO SUN 5 MG/ML, CONCENTRATO PER SOLUZIONE PER INFUSIONE [Suspect]
     Active Substance: OXALIPLATIN
     Indication: OVARIAN CANCER
     Dosage: 100 MILLIGRAMS, CYCLICAL
     Route: 042
     Dates: start: 20190823, end: 20190909
  2. LISATHYONE 600 MG/3 ML POLVERE E SOLVENTE PER SOLUZIONE INIETTABILE [Suspect]
     Active Substance: GLUTATHIONE
     Indication: OVARIAN CANCER
     Dosage: CYCLICAL
     Route: 042
     Dates: start: 20190823, end: 20190909
  3. GEMCITABINA HIKMA 1 G POLVERE PER SOLUZIONE PER INFUSIONE [Suspect]
     Active Substance: GEMCITABINE HYDROCHLORIDE
     Indication: OVARIAN CANCER
     Dosage: 1000 MILLIGRAMS, FOR CYCLICAL
     Route: 042
     Dates: end: 20190909
  4. KYTRIL [Suspect]
     Active Substance: GRANISETRON HYDROCHLORIDE
     Indication: OVARIAN CANCER
     Dosage: 3 MILLIGRAMS, CYCLICAL
     Route: 042
     Dates: start: 20190823, end: 20190909
  5. SELEPARINA 3.800 U.I. ANTIXA/0,4 ML SOLUZIONE INIETTABILE [Concomitant]
     Active Substance: NADROPARIN CALCIUM
     Indication: PRODUCT USED FOR UNKNOWN INDICATION
     Dosage: UNK
     Route: 058
  6. OMEPRAZOLO ZENTIVA ITALIA 20 MG CAPSULE RIGIDE GASTRORESISTENTI [Concomitant]
     Indication: PRODUCT USED FOR UNKNOWN INDICATION
     Dosage: 20 MILLIGRAMS, UNK
     Route: 048

REACTIONS (4)
  - Tachypnoea [Recovered/Resolved]
  - Abdominal pain [Recovered/Resolved]
  - Dyspnoea [Recovered/Resolved]
  - Chest pain [Recovered/Resolved]

NARRATIVE: CASE EVENT DATE: 20190909
